FAERS Safety Report 8096693-0 (Version None)
Quarter: 2012Q1

REPORT INFORMATION
  Report Type: 
  Country: None (occurrence: None)
  Receive Date: 20120129
  Receipt Date: 20111114
  Transmission Date: 20120608
  Serious: No
  Sender: FDA-Public Use
  Company Number: US-ABBOTT-11P-163-0874652-00

PATIENT
  Age: 31 Year
  Sex: Female
  Weight: 65.83 kg

DRUGS (1)
  1. HUMIRA [Suspect]
     Indication: TENDONITIS
     Dates: start: 20110501, end: 20110801

REACTIONS (3)
  - TENDONITIS [None]
  - DRUG INEFFECTIVE [None]
  - OFF LABEL USE [None]
